FAERS Safety Report 17836834 (Version 2)
Quarter: 2020Q3

REPORT INFORMATION
  Report Type: Spontaneous
  Country: KR (occurrence: KR)
  Receive Date: 20200528
  Receipt Date: 20200925
  Transmission Date: 20201103
  Serious: No
  Sender: FDA-Public Use
  Company Number: KR-GLAXOSMITHKLINE-KR2020088036

PATIENT
  Age: 86 Year
  Sex: Male

DRUGS (1)
  1. LAMISIL [Suspect]
     Active Substance: TERBINAFINE HYDROCHLORIDE
     Indication: TINEA PEDIS
     Dosage: UNK

REACTIONS (5)
  - Limb injury [Unknown]
  - Wound haemorrhage [Unknown]
  - Wrong technique in product usage process [Unknown]
  - Product complaint [Unknown]
  - Exposure via skin contact [Unknown]
